FAERS Safety Report 12828871 (Version 1)
Quarter: 2016Q4

REPORT INFORMATION
  Report Type: Spontaneous
  Country: US (occurrence: US)
  Receive Date: 20161007
  Receipt Date: 20161007
  Transmission Date: 20170207
  Serious: No
  Sender: FDA-Public Use
  Company Number: US-SA-2015SA171658

PATIENT
  Age: 58 Year
  Sex: Male

DRUGS (2)
  1. PRALUENT [Concomitant]
     Active Substance: ALIROCUMAB
     Dosage: STRENGTH: 75 MG?DOSE: 75 MG SQ EVERY TWO WEEKS
     Dates: start: 20150901
  2. AUBAGIO [Suspect]
     Active Substance: TERIFLUNOMIDE
     Indication: MULTIPLE SCLEROSIS
     Route: 065

REACTIONS (1)
  - Blood pressure increased [Unknown]
